FAERS Safety Report 22171112 (Version 2)
Quarter: 2023Q2

REPORT INFORMATION
  Report Type: Spontaneous
  Country: DE (occurrence: DE)
  Receive Date: 20230404
  Receipt Date: 20230607
  Transmission Date: 20230721
  Serious: Yes (Hospitalization, Other)
  Sender: FDA-Public Use
  Company Number: DE-EMA-DD-20230321-7182781-073613

PATIENT
  Age: 15 Year

DRUGS (9)
  1. ARIPIPRAZOLE [Interacting]
     Active Substance: ARIPIPRAZOLE
     Indication: Autism spectrum disorder
     Dosage: UNK
     Route: 065
  2. ARIPIPRAZOLE [Interacting]
     Active Substance: ARIPIPRAZOLE
     Indication: Antipsychotic therapy
  3. ARIPIPRAZOLE [Interacting]
     Active Substance: ARIPIPRAZOLE
     Indication: Intellectual disability
  4. PIPAMPERONE [Interacting]
     Active Substance: PIPAMPERONE
     Indication: Intellectual disability
     Dosage: UNK
     Route: 065
  5. PIPAMPERONE [Interacting]
     Active Substance: PIPAMPERONE
     Indication: Antipsychotic therapy
  6. PIPAMPERONE [Interacting]
     Active Substance: PIPAMPERONE
     Indication: Autism spectrum disorder
  7. ZUCLOPENTHIXOL [Interacting]
     Active Substance: ZUCLOPENTHIXOL
     Indication: Intellectual disability
     Dosage: UNK
     Route: 065
  8. ZUCLOPENTHIXOL [Interacting]
     Active Substance: ZUCLOPENTHIXOL
     Indication: Antipsychotic therapy
  9. ZUCLOPENTHIXOL [Interacting]
     Active Substance: ZUCLOPENTHIXOL
     Indication: Autism spectrum disorder

REACTIONS (1)
  - Electrocardiogram QT prolonged [Unknown]
